FAERS Safety Report 13841446 (Version 1)
Quarter: 2017Q3

REPORT INFORMATION
  Report Type: Spontaneous
  Country: US (occurrence: US)
  Receive Date: 20170807
  Receipt Date: 20170807
  Transmission Date: 20171127
  Serious: No
  Sender: FDA-Public Use
  Company Number: GXBR2017US001916

PATIENT
  Sex: Female
  Weight: 58.9 kg

DRUGS (1)
  1. LEUPROLIDE ACETATE. [Suspect]
     Active Substance: LEUPROLIDE ACETATE
     Indication: PRODUCT USED FOR UNKNOWN INDICATION
     Dosage: 0.2 ML, UNK
     Route: 058
     Dates: start: 20170607

REACTIONS (2)
  - Product use in unapproved indication [Unknown]
  - Injection site pain [Recovered/Resolved]
